FAERS Safety Report 15149148 (Version 1)
Quarter: 2018Q3

REPORT INFORMATION
  Report Type: Spontaneous
  Country: US (occurrence: US)
  Receive Date: 20180619
  Receipt Date: 20180619
  Transmission Date: 20181010
  Serious: No
  Sender: FDA-Public Use
  Company Number: None

PATIENT
  Age: 61 Year
  Sex: Female

DRUGS (1)
  1. SUTENT [Suspect]
     Active Substance: SUNITINIB MALATE
     Indication: MALIGNANT NEOPLASM OF RENAL PELVIS
     Dosage: 37.5 MG; QD FOR 4 WEEKS ON, 2 WEEKS OFF, PO
     Route: 048
     Dates: start: 20161026

REACTIONS (2)
  - Vulvovaginal pruritus [None]
  - Tenderness [None]

NARRATIVE: CASE EVENT DATE: 20180615
